FAERS Safety Report 16105287 (Version 1)
Quarter: 2019Q1

REPORT INFORMATION
  Report Type: Spontaneous
  Country: JP (occurrence: JP)
  Receive Date: 20190322
  Receipt Date: 20190322
  Transmission Date: 20190418
  Serious: Yes (Other)
  Sender: FDA-Public Use
  Company Number: JP-JNJFOC-20190325087

PATIENT
  Sex: Male

DRUGS (1)
  1. XEPLION [Suspect]
     Active Substance: PALIPERIDONE PALMITATE
     Indication: SCHIZOPHRENIA
     Route: 030
     Dates: end: 20190225

REACTIONS (3)
  - Water intoxication [Recovered/Resolved]
  - Hyponatraemia [Recovered/Resolved]
  - Psychiatric symptom [Not Recovered/Not Resolved]

NARRATIVE: CASE EVENT DATE: 20190303
